FAERS Safety Report 9989077 (Version 2)
Quarter: 2014Q1

REPORT INFORMATION
  Report Type: Report from Study
  Country: US (occurrence: US)
  Receive Date: 20140310
  Receipt Date: 20140310
  Transmission Date: 20141002
  Serious: No
  Sender: FDA-Public Use
  Company Number: US-ABBVIE-13P-163-1114788-00

PATIENT
  Age: 58 Year
  Sex: Female

DRUGS (5)
  1. HUMIRA [Suspect]
     Indication: RHEUMATOID ARTHRITIS
     Dates: start: 20130517
  2. UNKNOWN RHEUMATOID ARTHRITIS MEDICATIONS [Concomitant]
     Indication: RHEUMATOID ARTHRITIS
  3. UNKNOWN BLOOD PRESSURE MEDICATIONS [Concomitant]
     Indication: BLOOD PRESSURE
  4. UNKNOWN INHALER MEDICATION [Concomitant]
     Indication: DYSPNOEA
  5. UNKNOWN HORMONE MEDICATION [Concomitant]
     Indication: PRODUCT USED FOR UNKNOWN INDICATION

REACTIONS (6)
  - Contusion [Recovered/Resolved]
  - Injection site haemorrhage [Unknown]
  - Pain of skin [Unknown]
  - Injection site erythema [Not Recovered/Not Resolved]
  - Injection site pruritus [Not Recovered/Not Resolved]
  - Injection site warmth [Not Recovered/Not Resolved]
